FAERS Safety Report 6674958-4 (Version None)
Quarter: 2010Q2

REPORT INFORMATION
  Report Type: 
  Country: None (occurrence: None)
  Receive Date: 20100409
  Receipt Date: 20100405
  Transmission Date: 20101027
  Serious: Yes (Hospitalization)
  Sender: FDA-Public Use
  Company Number: US-SANOFI-AVENTIS-2010SA019441

PATIENT
  Age: 64 Year
  Sex: Female

DRUGS (6)
  1. LANTUS [Suspect]
     Indication: TYPE 2 DIABETES MELLITUS
     Dosage: DOSE:23 UNIT(S)
     Route: 058
     Dates: end: 20100324
  2. LANTUS [Suspect]
     Dosage: DOSE:23 UNIT(S)
     Route: 058
     Dates: start: 20100325
  3. APIDRA [Suspect]
     Indication: TYPE 2 DIABETES MELLITUS
     Route: 058
  4. COREG [Concomitant]
  5. PRILOSEC [Concomitant]
  6. AVALIDE [Concomitant]

REACTIONS (5)
  - BLOOD GLUCOSE INCREASED [None]
  - FACIAL BONES FRACTURE [None]
  - FALL [None]
  - UPPER LIMB FRACTURE [None]
  - VOMITING [None]
